FAERS Safety Report 20638231 (Version 2)
Quarter: 2023Q2

REPORT INFORMATION
  Report Type: Spontaneous
  Country: IN (occurrence: IN)
  Receive Date: 20220325
  Receipt Date: 20230425
  Transmission Date: 20230722
  Serious: Yes (Other)
  Sender: FDA-Public Use
  Company Number: IN-PFIZER INC-202200403418

PATIENT
  Age: 52 Year
  Sex: Male

DRUGS (2)
  1. SUTENT [Suspect]
     Active Substance: SUNITINIB MALATE
     Indication: Metastatic renal cell carcinoma
     Dosage: 50 MG, CYCLIC (4 WEEKS ON 2 WEEKS OFF)
     Route: 048
  2. ALLOPURINOL [Concomitant]
     Active Substance: ALLOPURINOL
     Dosage: 300 MG, 1X/DAY

REACTIONS (7)
  - Blood alkaline phosphatase increased [Unknown]
  - Blood uric acid increased [Unknown]
  - Blood bilirubin increased [Unknown]
  - Alanine aminotransferase increased [Unknown]
  - Aspartate aminotransferase increased [Unknown]
  - Blood urea increased [Unknown]
  - Blood glucose increased [Unknown]
